FAERS Safety Report 20409020 (Version 2)
Quarter: 2022Q3

REPORT INFORMATION
  Report Type: Report from Study
  Country: US (occurrence: US)
  Receive Date: 20220201
  Receipt Date: 20220912
  Transmission Date: 20221026
  Serious: No
  Sender: FDA-Public Use
  Company Number: US-NOVARTISTESTPH-NVSC2022US021685

PATIENT
  Sex: Male

DRUGS (1)
  1. ENTRESTO [Suspect]
     Active Substance: SACUBITRIL\VALSARTAN
     Indication: Product used for unknown indication
     Dosage: 50 MG, BID, (24.3 MG OF SACUBITRIL AND 25.7 MG OF VALSARTAN)
     Route: 048
     Dates: start: 202112

REACTIONS (4)
  - Throat clearing [Unknown]
  - Occupational exposure to dust [Unknown]
  - Nasal congestion [Unknown]
  - Stress [Unknown]
